FAERS Safety Report 25736167 (Version 1)
Quarter: 2025Q3

REPORT INFORMATION
  Report Type: Spontaneous
  Country: US (occurrence: US)
  Receive Date: 20250828
  Receipt Date: 20250828
  Transmission Date: 20251021
  Serious: No
  Sender: SANOFI AVENTIS
  Company Number: US-SANOFI-02631726

PATIENT
  Age: 60 Year
  Sex: Female

DRUGS (2)
  1. LANTUS SOLOSTAR [Suspect]
     Active Substance: INSULIN GLARGINE
     Indication: Type 2 diabetes mellitus
     Dosage: 8 UNITS AT NIGHT
     Dates: start: 20250801
  2. LANTUS SOLOSTAR [Suspect]
     Active Substance: INSULIN GLARGINE
     Dosage: 12 IU, QD
     Dates: start: 202508

REACTIONS (10)
  - Dizziness [Not Recovered/Not Resolved]
  - Fall [Unknown]
  - Dysphonia [Unknown]
  - Asthenia [Unknown]
  - Fatigue [Unknown]
  - Drug hypersensitivity [Unknown]
  - Swelling face [Unknown]
  - Periorbital swelling [Unknown]
  - Oropharyngeal discomfort [Unknown]
  - Blood glucose increased [Unknown]
